FAERS Safety Report 16850662 (Version 1)
Quarter: 2019Q3

REPORT INFORMATION
  Report Type: Spontaneous
  Country: US (occurrence: US)
  Receive Date: 20190925
  Receipt Date: 20190925
  Transmission Date: 20191005
  Serious: No
  Sender: FDA-Public Use
  Company Number: US-THERAPEUTICSMD-2019TMD02588

PATIENT
  Age: 67 Year
  Sex: Female

DRUGS (3)
  1. UNSPECIFIED EYE DROP [Concomitant]
  2. LISINOPRIL. [Suspect]
     Active Substance: LISINOPRIL
     Dosage: UNK
  3. IMVEXXY [Suspect]
     Active Substance: ESTRADIOL
     Dosage: UNK, 2X/WEEK IN THE MORNING
     Route: 067
     Dates: start: 20190805

REACTIONS (7)
  - Crepitations [Unknown]
  - Off label use [Not Recovered/Not Resolved]
  - Arthritis [Unknown]
  - Eye pruritus [Unknown]
  - Lip swelling [Unknown]
  - Dizziness [Unknown]
  - Ear discomfort [Unknown]

NARRATIVE: CASE EVENT DATE: 20190805
